FAERS Safety Report 23814743 (Version 3)
Quarter: 2024Q2

REPORT INFORMATION
  Report Type: Spontaneous
  Country: FR (occurrence: FR)
  Receive Date: 20240503
  Receipt Date: 20240527
  Transmission Date: 20240715
  Serious: Yes (Hospitalization)
  Sender: FDA-Public Use
  Company Number: None

PATIENT
  Age: 64 Year
  Sex: Female
  Weight: 57.2 kg

DRUGS (14)
  1. CELLCEPT [Suspect]
     Active Substance: MYCOPHENOLATE MOFETIL
     Indication: Prophylaxis against transplant rejection
     Route: 048
     Dates: start: 202305
  2. VALGANCICLOVIR HYDROCHLORIDE [Suspect]
     Active Substance: VALGANCICLOVIR HYDROCHLORIDE
     Indication: Antiviral prophylaxis
     Dosage: 12H (MIDDAY)
     Route: 048
     Dates: start: 202305, end: 20240227
  3. BACTRIM [Suspect]
     Active Substance: SULFAMETHOXAZOLE\TRIMETHOPRIM
     Indication: Infection prophylaxis
     Dosage: 1 CAPSULE EVERY MONDAY, WEDNESDAY AND FRIDAY, 12 NOON - MONDAYS, WEDNESDAYS, FRIDAYS?800 MG
     Route: 065
     Dates: start: 202305, end: 20240221
  4. TACROLIMUS [Suspect]
     Active Substance: TACROLIMUS
     Indication: Prophylaxis against transplant rejection
     Dosage: SUSTAINED-RELEASE CAPSULE,9HRS
     Route: 065
     Dates: start: 202305
  5. CALCIUM CARBONATE [Suspect]
     Active Substance: CALCIUM CARBONATE
     Indication: Product used for unknown indication
     Dosage: ORAL POWDER SACHET, 2SACHETS, MIDDAY
     Route: 048
  6. PREDNISONE [Suspect]
     Active Substance: PREDNISONE
     Indication: Product used for unknown indication
     Dosage: 9 AM
     Route: 048
  7. FLECAINIDE ACETATE [Concomitant]
     Active Substance: FLECAINIDE ACETATE
     Dosage: SUSTAINED-RELEASE CAPSULE, 8H (MORNING), 18H (EVENING)
  8. MIRTAZAPINE [Concomitant]
     Active Substance: MIRTAZAPINE
     Dosage: 8H (MORNING),
  9. ALPRAZOLAM [Concomitant]
     Active Substance: ALPRAZOLAM
     Dosage: 1 TABLET IF ANXIETY, 1X/DAY
  10. PANTOPRAZOLE [Concomitant]
     Active Substance: PANTOPRAZOLE
     Dosage: 1 TABLET, 8AM (MORNING), 6PM (EVENING)
  11. POLYETHYLENE GLYCOL 4000 [Concomitant]
     Active Substance: POLYETHYLENE GLYCOL 4000
     Dosage: POWDER FOR DRINKABLE SOLUTION IN SACHET, 2SACHETS, 8H (MORNING)
  12. ACETAMINOPHEN [Concomitant]
     Active Substance: ACETAMINOPHEN
     Dosage: 1 TABLET IF PAIN, 3 TIMES A DAY
  13. NALOXEGOL [Concomitant]
     Active Substance: NALOXEGOL
     Dosage: 1 TABLET, 8AM (MORNING)
  14. APIXABAN [Concomitant]
     Active Substance: APIXABAN
     Dosage: 8AM (MORNING), 6PM (EVENING)

REACTIONS (1)
  - Haematotoxicity [Not Recovered/Not Resolved]

NARRATIVE: CASE EVENT DATE: 20230726
